FAERS Safety Report 15565714 (Version 1)
Quarter: 2018Q4

REPORT INFORMATION
  Report Type: Spontaneous
  Country: US (occurrence: US)
  Receive Date: 20181030
  Receipt Date: 20181030
  Transmission Date: 20190205
  Serious: No
  Sender: FDA-Public Use
  Company Number: US-NOVOPROD-603153

PATIENT
  Age: 58 Year
  Sex: Female

DRUGS (1)
  1. YUVAFEM [Suspect]
     Active Substance: ESTRADIOL HEMIHYDRATE
     Indication: ATROPHIC VULVOVAGINITIS
     Dosage: UNK
     Route: 067
     Dates: start: 2017

REACTIONS (2)
  - Product package associated injury [Unknown]
  - Product packaging issue [Recovered/Resolved]

NARRATIVE: CASE EVENT DATE: 2017
